FAERS Safety Report 9398326 (Version 1)
Quarter: 2013Q3

REPORT INFORMATION
  Report Type: Spontaneous
  Country: GB (occurrence: GB)
  Receive Date: 20130712
  Receipt Date: 20130712
  Transmission Date: 20140515
  Serious: Yes (Other)
  Sender: FDA-Public Use
  Company Number: GB-GLAXOSMITHKLINE-B0905379A

PATIENT
  Age: 19 Year
  Sex: Male
  Weight: 117.92 kg

DRUGS (7)
  1. SERETIDE [Suspect]
     Dosage: 2000MCG PER DAY
     Route: 055
     Dates: start: 20130620, end: 20130624
  2. SERTRALINE [Concomitant]
  3. OMEPRAZOLE [Concomitant]
  4. VENTOLIN [Concomitant]
  5. FEXOFENADINE [Concomitant]
  6. UNKNOWN [Concomitant]
  7. CLENIL MODULITE [Concomitant]

REACTIONS (2)
  - Arrhythmia [Recovered/Resolved]
  - Palpitations [Recovered/Resolved]
